FAERS Safety Report 5099081-4 (Version None)
Quarter: 2006Q3

REPORT INFORMATION
  Report Type: 
  Country: None (occurrence: None)
  Receive Date: 20060731
  Receipt Date: 20060103
  Transmission Date: 20061208
  Serious: Yes (Hospitalization)
  Sender: FDA-Public Use
  Company Number: 220773

PATIENT
  Age: 48 Year
  Sex: Male
  Weight: 73.9 kg

DRUGS (4)
  1. RITUXAN [Suspect]
     Indication: CHRONIC LYMPHOCYTIC LEUKAEMIA
     Dosage: 700 MG, Q3W, INTRAVENOUS
     Route: 042
     Dates: start: 20050729
  2. PENTOSTATIN (PENTOSTATIN) [Suspect]
     Indication: CHRONIC LYMPHOCYTIC LEUKAEMIA
  3. CYTOXAN [Suspect]
     Indication: CHRONIC LYMPHOCYTIC LEUKAEMIA
  4. NEULASTA [Concomitant]

REACTIONS (2)
  - HYPOTENSION [None]
  - PYREXIA [None]
